FAERS Safety Report 19951933 (Version 1)
Quarter: 2021Q4

REPORT INFORMATION
  Report Type: Spontaneous
  Country: BE (occurrence: BE)
  Receive Date: 20211013
  Receipt Date: 20211013
  Transmission Date: 20220303
  Serious: Yes (Other)
  Sender: FDA-Public Use
  Company Number: BE-PFIZER INC-2021681999

PATIENT
  Age: 69 Year

DRUGS (3)
  1. DICLOFENAC [Suspect]
     Active Substance: DICLOFENAC
     Indication: Product used for unknown indication
     Dosage: UNK
  2. METHOTREXATE (METHOTREXATE SODIUM) [Suspect]
     Active Substance: METHOTREXATE SODIUM
     Indication: Rheumatoid arthritis
     Dosage: UNK
     Dates: start: 201909
  3. PREDNISONE [Suspect]
     Active Substance: PREDNISONE
     Indication: Rheumatoid arthritis
     Dosage: UNK
     Dates: start: 201909

REACTIONS (6)
  - Oedematous pancreatitis [Unknown]
  - Hepatitis [Unknown]
  - Liver function test abnormal [Unknown]
  - Pancreatic calcification [Unknown]
  - Hypergammaglobulinaemia benign monoclonal [Unknown]
  - Lithiasis [Unknown]

NARRATIVE: CASE EVENT DATE: 20191001
